FAERS Safety Report 6339040-4 (Version None)
Quarter: 2009Q3

REPORT INFORMATION
  Report Type: 
  Country: None (occurrence: None)
  Receive Date: 20090903
  Receipt Date: 20090828
  Transmission Date: 20100115
  Serious: Yes (Hospitalization, Disabling, Other)
  Sender: FDA-Public Use
  Company Number: JP-BAYER-200910383BYL

PATIENT
  Age: 51 Year
  Sex: Male
  Weight: 44 kg

DRUGS (15)
  1. FLUDARA [Suspect]
     Indication: ACUTE MYELOID LEUKAEMIA
     Dosage: AS USED: 43 MG  UNIT DOSE: 50 MG
     Route: 042
     Dates: start: 20080802, end: 20080806
  2. MELPHALAN HYDROCHLORIDE [Suspect]
     Indication: ACUTE MYELOID LEUKAEMIA
     Dosage: AS USED: 156 MG
     Route: 042
     Dates: start: 20080805, end: 20080806
  3. LEVOFLOXACIN [Concomitant]
     Indication: INFECTION PROPHYLAXIS
     Dosage: AS USED: 300 MG  UNIT DOSE: 100 MG
     Route: 048
     Dates: start: 20080802, end: 20080828
  4. DIFLUCAN [Concomitant]
     Indication: INFECTION PROPHYLAXIS
     Dosage: AS USED: 200 MG
     Route: 048
     Dates: start: 20080802
  5. GASTER D [Concomitant]
     Dosage: AS USED: 20 MG
     Route: 048
     Dates: start: 20080802, end: 20081001
  6. SELBEX [Concomitant]
     Dosage: AS USED: 150 MG
     Route: 048
     Dates: start: 20080802
  7. URSO 250 [Concomitant]
     Dosage: AS USED: 600 MG
     Route: 048
     Dates: start: 20080802
  8. METHOTREXATE [Concomitant]
     Indication: PROPHYLAXIS AGAINST GRAFT VERSUS HOST DISEASE
     Dosage: AS USED: 12 MG
     Route: 042
     Dates: start: 20080814, end: 20080814
  9. METHOTREXATE [Concomitant]
     Dosage: AS USED: 12 MG
     Route: 042
     Dates: start: 20080811, end: 20080811
  10. METHOTREXATE [Concomitant]
     Dosage: AS USED: 17 MG
     Route: 042
     Dates: start: 20080809, end: 20080809
  11. PROGRAF [Concomitant]
     Indication: PROPHYLAXIS AGAINST GRAFT VERSUS HOST DISEASE
     Dosage: AS USED: 1 MG
     Route: 042
     Dates: start: 20080807, end: 20081103
  12. PROGRAF [Concomitant]
     Dosage: AS USED: 0.6 MG
     Route: 048
     Dates: start: 20081027
  13. GRAN [Concomitant]
     Dosage: AS USED: 450 ?G
     Route: 042
     Dates: start: 20080815, end: 20080824
  14. SOLU-MEDROL [Concomitant]
     Indication: GRAFT VERSUS HOST DISEASE
     Dosage: AS USED: 120 MG
     Route: 042
     Dates: start: 20080824, end: 20080903
  15. FOY [Concomitant]
     Indication: SEPSIS
     Dosage: AS USED: 2000 MG
     Route: 042
     Dates: start: 20080822, end: 20080829

REACTIONS (4)
  - ACUTE GRAFT VERSUS HOST DISEASE [None]
  - FLUID RETENTION [None]
  - HEPATIC FUNCTION ABNORMAL [None]
  - SEPSIS [None]
